FAERS Safety Report 10513614 (Version 1)
Quarter: 2014Q4

REPORT INFORMATION
  Report Type: Spontaneous
  Country: US (occurrence: US)
  Receive Date: 20141013
  Receipt Date: 20141013
  Transmission Date: 20150528
  Serious: No
  Sender: FDA-Public Use
  Company Number: US-PFIZER INC-2014279188

PATIENT
  Age: 51 Year
  Sex: Male
  Weight: 80.73 kg

DRUGS (1)
  1. LYRICA [Suspect]
     Active Substance: PREGABALIN
     Indication: NERVE COMPRESSION
     Dosage: UNK

REACTIONS (2)
  - Dizziness [Unknown]
  - Feeling abnormal [Unknown]
